FAERS Safety Report 10128434 (Version 1)
Quarter: 2014Q2

REPORT INFORMATION
  Report Type: Spontaneous
  Country: US (occurrence: US)
  Receive Date: 20140428
  Receipt Date: 20140428
  Transmission Date: 20141212
  Serious: Yes (Other)
  Sender: FDA-Public Use
  Company Number: US-ROCHE-1389927

PATIENT
  Age: 57 Year
  Sex: Female

DRUGS (3)
  1. PEGASYS [Suspect]
     Indication: HEPATITIS C
     Route: 058
     Dates: start: 20130911, end: 20140401
  2. RIBAPAK [Concomitant]
     Indication: HEPATITIS C
     Dosage: ONGOING
     Route: 048
     Dates: start: 20140403
  3. SOVALDI [Concomitant]
     Indication: HEPATITIS C
     Dosage: ONGOING
     Route: 048
     Dates: start: 20140403

REACTIONS (4)
  - Skin ulcer [Unknown]
  - Insomnia [Unknown]
  - Alopecia [Unknown]
  - Fatigue [Unknown]
